FAERS Safety Report 8876151 (Version 1)
Quarter: 2012Q4

REPORT INFORMATION
  Report Type: 
  Country: US (occurrence: US)
  Receive Date: 20121030
  Receipt Date: 20121030
  Transmission Date: 20130627
  Serious: No
  Sender: FDA-Public Use
  Company Number: US-BAYER-2012-113617

PATIENT
  Sex: Female
  Weight: 76 kg

DRUGS (16)
  1. BETASERON [Suspect]
     Dosage: UNK UNK, QOD
     Route: 058
  2. NEURONTIN [Concomitant]
     Dosage: 100 mg, UNK
  3. CLONAZEPAM [Concomitant]
     Dosage: 1 mg, UNK
  4. POTASSIUM [Concomitant]
     Dosage: 75 mg, UNK
  5. FIBER [Concomitant]
     Dosage: 625 mg, UNK
  6. BENAZEPRIL [Concomitant]
     Dosage: 5 mg, UNK
  7. PRAVASTATIN [Concomitant]
     Dosage: 10 mg, UNK
  8. TRAZODONE [Concomitant]
     Dosage: 100 mg, UNK
  9. CELEXA [Concomitant]
     Dosage: 10 mg, UNK
  10. STADOL [Concomitant]
  11. LEVOTHYROXINE [Concomitant]
     Dosage: 88 ?g, UNK
  12. DYAZIDE [Concomitant]
  13. LORTAB [Concomitant]
     Dosage: 5 mg, UNK
  14. PROMETHAZINE [Concomitant]
     Dosage: 12.5 mg, UNK
  15. FISH OIL [Concomitant]
  16. MULTIVITAMIN [Concomitant]

REACTIONS (5)
  - Headache [Unknown]
  - Arthralgia [Unknown]
  - Hypoaesthesia [Unknown]
  - Hypersomnia [None]
  - Joint stiffness [Unknown]
